FAERS Safety Report 8303672-4 (Version None)
Quarter: 2012Q2

REPORT INFORMATION
  Report Type: 
  Country: None (occurrence: None)
  Receive Date: 20120423
  Receipt Date: 20120416
  Transmission Date: 20120825
  Serious: Yes (Hospitalization, Other)
  Sender: FDA-Public Use
  Company Number: IN-PFIZER INC-2012095680

PATIENT
  Age: 58 Year
  Sex: Male

DRUGS (1)
  1. SUTENT [Suspect]
     Indication: METASTATIC RENAL CELL CARCINOMA
     Dosage: 50 MG, 1X/DAY
     Route: 048
     Dates: start: 20120313, end: 20120401

REACTIONS (7)
  - PLATELET COUNT DECREASED [None]
  - BLOOD POTASSIUM INCREASED [None]
  - VOMITING [None]
  - ASCITES [None]
  - ABDOMINAL DISTENSION [None]
  - ASTHENIA [None]
  - PLEURAL EFFUSION [None]
